FAERS Safety Report 24983161 (Version 2)
Quarter: 2025Q1

REPORT INFORMATION
  Report Type: Report from Study
  Country: US (occurrence: US)
  Receive Date: 20250218
  Receipt Date: 20250317
  Transmission Date: 20250409
  Serious: No
  Sender: SUNOVION
  Company Number: US-SUMITOMO PHARMA SWITZERLAND GMBH-2025SPA001242

PATIENT

DRUGS (2)
  1. ORGOVYX [Suspect]
     Active Substance: RELUGOLIX
     Indication: Prostate cancer
     Route: 048
  2. ORGOVYX [Suspect]
     Active Substance: RELUGOLIX
     Dosage: 120 MG, QD
     Route: 048
     Dates: start: 20250203

REACTIONS (14)
  - Muscle atrophy [Unknown]
  - Decreased appetite [Unknown]
  - Food intolerance [Unknown]
  - Urinary incontinence [Unknown]
  - Pain [Unknown]
  - Weight decreased [Unknown]
  - COVID-19 [Unknown]
  - Vertigo [Unknown]
  - Cough [Unknown]
  - Exercise tolerance decreased [Unknown]
  - Bone loss [Unknown]
  - Blood glucose increased [Unknown]
  - Fatigue [Unknown]
  - Asthenia [Unknown]
